FAERS Safety Report 10891872 (Version 1)
Quarter: 2015Q1

REPORT INFORMATION
  Report Type: Report from Study
  Country: GB (occurrence: GB)
  Receive Date: 20150306
  Receipt Date: 20150306
  Transmission Date: 20150721
  Serious: Yes (Death)
  Sender: FDA-Public Use
  Company Number: GB-ROCHE-1547689

PATIENT
  Age: 62 Year
  Sex: Male
  Weight: 51 kg

DRUGS (3)
  1. EPIRUBICIN [Suspect]
     Active Substance: EPIRUBICIN
     Indication: OESOPHAGEAL ADENOCARCINOMA
     Dosage: MOST RECENT DOSE WAS ADMINISTERED ON 14/JUL/2009- 75 MG
     Route: 042
     Dates: start: 20090512
  2. CAPECITABINE. [Suspect]
     Active Substance: CAPECITABINE
     Indication: OESOPHAGEAL ADENOCARCINOMA
     Dosage: MOST RECENT DOSE WAS GIVEN ON 30/JUL/2009- 660 MG
     Route: 048
     Dates: start: 20090512
  3. CISPLATIN. [Suspect]
     Active Substance: CISPLATIN
     Indication: OESOPHAGEAL ADENOCARCINOMA
     Dosage: MOST RECENT DOSE WAS ADMINISTERED ON 14/JUL/2009-88 MG
     Route: 042
     Dates: start: 20090512

REACTIONS (2)
  - Cardiomyopathy [Fatal]
  - Oesophageal carcinoma [Fatal]

NARRATIVE: CASE EVENT DATE: 20090731
